FAERS Safety Report 10882162 (Version 1)
Quarter: 2015Q1

REPORT INFORMATION
  Report Type: Report from Study
  Country: MX (occurrence: MX)
  Receive Date: 20150303
  Receipt Date: 20150303
  Transmission Date: 20150721
  Serious: Yes (Hospitalization, Other)
  Sender: FDA-Public Use
  Company Number: PHHY2013MX150473

PATIENT
  Age: 57 Year
  Sex: Female

DRUGS (4)
  1. CO-DIOVAN [Suspect]
     Active Substance: HYDROCHLOROTHIAZIDE\VALSARTAN
     Dosage: 0.5 DF, BID (IN THE MORNING AND NIGHT)
     Route: 048
  2. ADEPSIQUE [Concomitant]
     Indication: DEPRESSION
     Dosage: 1 OT, QD
     Route: 065
  3. CO-DIOVAN [Suspect]
     Active Substance: HYDROCHLOROTHIAZIDE\VALSARTAN
     Indication: HYPERTENSION
     Dosage: 1 DF, QD
     Route: 048
     Dates: start: 20130713
  4. CARBAMAZEPINE. [Concomitant]
     Active Substance: CARBAMAZEPINE
     Indication: PRODUCT USED FOR UNKNOWN INDICATION
     Dosage: 0.5 DF, QD
     Route: 065

REACTIONS (24)
  - Bronchospasm [Recovering/Resolving]
  - Cardiac disorder [Not Recovered/Not Resolved]
  - Mental disorder [Not Recovered/Not Resolved]
  - Wrong technique in drug usage process [Not Recovered/Not Resolved]
  - Drug prescribing error [Unknown]
  - Feeling abnormal [Not Recovered/Not Resolved]
  - Off label use [Unknown]
  - Burning sensation [Recovered/Resolved]
  - Nausea [Unknown]
  - Blood pressure increased [Unknown]
  - Rhinorrhoea [Recovering/Resolving]
  - Presyncope [Not Recovered/Not Resolved]
  - Nervousness [Not Recovered/Not Resolved]
  - Tension [Not Recovered/Not Resolved]
  - Head discomfort [Unknown]
  - Dysstasia [Unknown]
  - General physical health deterioration [Unknown]
  - Blood glucose decreased [Not Recovered/Not Resolved]
  - Eye pruritus [Recovering/Resolving]
  - Slipping rib syndrome [Unknown]
  - Blood pressure decreased [Not Recovered/Not Resolved]
  - Pruritus [Recovering/Resolving]
  - Brain hypoxia [Not Recovered/Not Resolved]
  - Syncope [Not Recovered/Not Resolved]

NARRATIVE: CASE EVENT DATE: 20130802
